FAERS Safety Report 12859666 (Version 1)
Quarter: 2016Q4

REPORT INFORMATION
  Report Type: Spontaneous
  Country: US (occurrence: US)
  Receive Date: 20161017
  Receipt Date: 20161017
  Transmission Date: 20170207
  Serious: Yes (Hospitalization)
  Sender: FDA-Public Use
  Company Number: None

PATIENT
  Age: 80 Year
  Sex: Male
  Weight: 113.5 kg

DRUGS (5)
  1. CIPROFLOXACIN 500 MG QTY 28 [Suspect]
     Active Substance: CIPROFLOXACIN
     Indication: URINARY TRACT INFECTION
     Dosage: 28 PILLS TWICE DAILY MORN/NITE
     Dates: start: 20160801, end: 20160803
  2. VITAMIN C [Concomitant]
     Active Substance: ASCORBIC ACID
  3. VITAMIN E [Concomitant]
     Active Substance: .ALPHA.-TOCOPHEROL
  4. FLOMAX [Concomitant]
     Active Substance: TAMSULOSIN HYDROCHLORIDE
  5. FISH OIL [Concomitant]
     Active Substance: FISH OIL

REACTIONS (4)
  - Palpitations [None]
  - Urethral stenosis [None]
  - Vision blurred [None]
  - Arthralgia [None]

NARRATIVE: CASE EVENT DATE: 20160801
